FAERS Safety Report 25127356 (Version 3)
Quarter: 2025Q3

REPORT INFORMATION
  Report Type: Report from Study
  Country: US (occurrence: US)
  Receive Date: 20250327
  Receipt Date: 20250821
  Transmission Date: 20251021
  Serious: Yes (Hospitalization, Other)
  Sender: ABBVIE
  Company Number: US-ABBVIE-6194257

PATIENT
  Age: 58 Year
  Sex: Male
  Weight: 106 kg

DRUGS (8)
  1. SKYRIZI [Suspect]
     Active Substance: RISANKIZUMAB-RZAA
     Indication: Crohn^s disease
     Route: 058
     Dates: start: 202208
  2. SKYRIZI [Suspect]
     Active Substance: RISANKIZUMAB-RZAA
     Route: 058
     Dates: start: 202306
  3. TAMSULOSIN [Concomitant]
     Active Substance: TAMSULOSIN
     Indication: Product used for unknown indication
     Route: 048
  4. METRONIDAZOLE [Concomitant]
     Active Substance: METRONIDAZOLE
     Indication: Product used for unknown indication
     Route: 048
  5. HYDRODIURIL [Concomitant]
     Active Substance: HYDROCHLOROTHIAZIDE
     Indication: Product used for unknown indication
     Route: 048
  6. COVID-19 vaccine [Concomitant]
     Indication: COVID-19 immunisation
  7. INFLUENZA VIRUS VACCINE [Concomitant]
     Active Substance: INFLUENZA VIRUS VACCINE
     Indication: Product used for unknown indication
  8. ASPIRIN [Concomitant]
     Active Substance: ASPIRIN
     Indication: Product used for unknown indication

REACTIONS (8)
  - Pulmonary embolism [Recovering/Resolving]
  - Crohn^s disease [Recovered/Resolved]
  - Ulcer [Not Recovered/Not Resolved]
  - Asthenia [Recovering/Resolving]
  - Loss of consciousness [Recovering/Resolving]
  - Blood iron abnormal [Not Recovered/Not Resolved]
  - Haematochezia [Not Recovered/Not Resolved]
  - Gastrointestinal pain [Unknown]

NARRATIVE: CASE EVENT DATE: 20240801
